FAERS Safety Report 21142570 (Version 2)
Quarter: 2022Q3

REPORT INFORMATION
  Report Type: Spontaneous
  Country: US (occurrence: US)
  Receive Date: 20220728
  Receipt Date: 20220801
  Transmission Date: 20221027
  Serious: No
  Sender: FDA-Public Use
  Company Number: US-PFIZER INC-202201014362

PATIENT
  Age: 23 Year
  Sex: Female
  Weight: 90.26 kg

DRUGS (1)
  1. PAXLOVID [Suspect]
     Active Substance: NIRMATRELVIR\RITONAVIR
     Indication: COVID-19 treatment
     Dosage: UNK
     Dates: start: 20220726, end: 202207

REACTIONS (11)
  - Musculoskeletal discomfort [Unknown]
  - Pain in jaw [Unknown]
  - Dizziness [Unknown]
  - Confusional state [Unknown]
  - Asthenia [Unknown]
  - Feeling cold [Unknown]
  - Paraesthesia [Unknown]
  - Abnormal dreams [Unknown]
  - Hypersensitivity [Unknown]
  - Anxiety [Unknown]
  - Feeling abnormal [Unknown]

NARRATIVE: CASE EVENT DATE: 20220727
